FAERS Safety Report 10050882 (Version 2)
Quarter: 2014Q2

REPORT INFORMATION
  Report Type: Spontaneous
  Country: CN (occurrence: CN)
  Receive Date: 20140401
  Receipt Date: 20140515
  Transmission Date: 20141212
  Serious: Yes (Hospitalization, Other)
  Sender: FDA-Public Use
  Company Number: CN-ASTRAZENECA-2014SE20829

PATIENT
  Age: 65 Year
  Sex: Female

DRUGS (3)
  1. PLENDIL [Suspect]
     Indication: HYPERTENSION
     Dosage: 2.5MG QD IN SUMMER, 5MG QD IN WINTER
     Route: 048
     Dates: start: 2004, end: 201402
  2. WARFARIN [Concomitant]
     Indication: THROMBOSIS
     Route: 048
     Dates: start: 201401
  3. NORVASC [Concomitant]
     Indication: HYPERTENSION
     Route: 048
     Dates: start: 201402

REACTIONS (6)
  - Thrombotic stroke [Recovered/Resolved]
  - Vascular occlusion [Not Recovered/Not Resolved]
  - Atrial fibrillation [Unknown]
  - Cerebral thrombosis [Unknown]
  - Aphasia [Recovering/Resolving]
  - Supraventricular extrasystoles [Unknown]
